FAERS Safety Report 25949472 (Version 1)
Quarter: 2025Q4

REPORT INFORMATION
  Report Type: Spontaneous
  Country: US (occurrence: US)
  Receive Date: 20251022
  Receipt Date: 20251022
  Transmission Date: 20260117
  Serious: No
  Sender: SANDOZ
  Company Number: US-SANDOZ-SDZ2025US075970

PATIENT
  Age: 31 Year
  Sex: Female

DRUGS (2)
  1. ALBUTEROL SULFATE [Suspect]
     Active Substance: ALBUTEROL SULFATE
     Indication: Dyspnoea
     Dosage: 2 PUFS EVERY 4 HOURS (STRENGTH 90 MCG)
     Route: 048
     Dates: start: 20251007, end: 20251012
  2. ALBUTEROL SULFATE [Suspect]
     Active Substance: ALBUTEROL SULFATE
     Indication: Anxiety

REACTIONS (2)
  - Drug dose omission by device [Unknown]
  - Product quality issue [Unknown]

NARRATIVE: CASE EVENT DATE: 20251001
